FAERS Safety Report 4448887-0 (Version None)
Quarter: 2004Q3

REPORT INFORMATION
  Report Type: 
  Country: None (occurrence: None)
  Receive Date: 20040909
  Receipt Date: 20040901
  Transmission Date: 20050211
  Serious: Yes (Other)
  Sender: FDA-Public Use
  Company Number: 2004-07-0946

PATIENT

DRUGS (6)
  1. IMDUR [Suspect]
     Dosage: ORAL
     Route: 048
  2. VERAPAMIL [Concomitant]
  3. GLUCOTROL [Concomitant]
  4. PRILOSEC [Concomitant]
  5. TRICOR [Concomitant]
  6. TOPROL-XL [Concomitant]

REACTIONS (1)
  - HAEMOLYTIC ANAEMIA [None]
